FAERS Safety Report 4525741-7 (Version None)
Quarter: 2004Q4

REPORT INFORMATION
  Report Type: 
  Country: None (occurrence: None)
  Receive Date: 20041116
  Receipt Date: 20040720
  Transmission Date: 20050328
  Serious: No
  Sender: FDA-Public Use
  Company Number: S04-USA-04185-01

PATIENT
  Age: 79 Year
  Sex: Female

DRUGS (5)
  1. NAMENDA [Suspect]
     Indication: DEMENTIA ALZHEIMER'S TYPE
     Dates: start: 20040310, end: 20040426
  2. ATIVAN [Concomitant]
  3. CELEXA [Concomitant]
  4. ARICEPT [Concomitant]
  5. FOSAMAX [Concomitant]

REACTIONS (3)
  - GAIT DISTURBANCE [None]
  - POSTURE ABNORMAL [None]
  - URINARY INCONTINENCE [None]
